FAERS Safety Report 9559143 (Version 5)
Quarter: 2016Q1

REPORT INFORMATION
  Report Type: Spontaneous
  Country: US (occurrence: US)
  Receive Date: 20130927
  Receipt Date: 20160226
  Transmission Date: 20160526
  Serious: Yes (Other)
  Sender: FDA-Public Use
  Company Number: US-ASTRAZENECA-2013SE69073

PATIENT
  Age: 74 Year
  Sex: Female
  Weight: 85.3 kg

DRUGS (30)
  1. SYMBICORT [Suspect]
     Active Substance: BUDESONIDE\FORMOTEROL FUMARATE DIHYDRATE
     Indication: EMPHYSEMA
     Dosage: 80/4.5, ONE PUFF TWICE DAILY
     Route: 055
     Dates: start: 2013, end: 2013
  2. FORADIL [Concomitant]
     Active Substance: FORMOTEROL FUMARATE
     Indication: CHRONIC OBSTRUCTIVE PULMONARY DISEASE
     Dosage: 1-2 PUFFS BID
     Route: 055
     Dates: start: 20130805, end: 2015
  3. XOPENEX HFA [Concomitant]
     Active Substance: LEVALBUTEROL TARTRATE
     Indication: ASTHMA
     Dosage: PRESCRIBED UP TO 4 X, DAILY
     Route: 055
     Dates: start: 2012
  4. GUAIFENESIN. [Concomitant]
     Active Substance: GUAIFENESIN
     Indication: COUGH
     Dosage: PRN
     Route: 048
  5. PREDNISONE. [Concomitant]
     Active Substance: PREDNISONE
     Indication: ASTHMA
  6. ADVIL [Concomitant]
     Active Substance: IBUPROFEN
     Indication: PAIN
     Dosage: AS NEEDED
  7. SYMBICORT [Suspect]
     Active Substance: BUDESONIDE\FORMOTEROL FUMARATE DIHYDRATE
     Indication: ASTHMA
     Dosage: 80/4.5, TWO PUFFS TWICE DAILY
     Route: 055
     Dates: start: 20131126, end: 201401
  8. SYMBICORT [Suspect]
     Active Substance: BUDESONIDE\FORMOTEROL FUMARATE DIHYDRATE
     Indication: ASTHMA
     Dosage: 80/4.5 UG TWO PUFFS TWO TIMES A DAY
     Route: 055
     Dates: start: 20150810
  9. SYMBICORT [Suspect]
     Active Substance: BUDESONIDE\FORMOTEROL FUMARATE DIHYDRATE
     Indication: EMPHYSEMA
     Dosage: 80/4.5 UG TWO PUFFS TWO TIMES A DAY
     Route: 055
     Dates: start: 20150810
  10. TUDORZA PRESSAIR [Suspect]
     Active Substance: ACLIDINIUM BROMIDE
     Indication: CHRONIC OBSTRUCTIVE PULMONARY DISEASE
     Route: 055
     Dates: start: 20160104
  11. XOPENEX HFA [Concomitant]
     Active Substance: LEVALBUTEROL TARTRATE
     Indication: EMPHYSEMA
     Dosage: PRESCRIBED UP TO 4 X, DAILY
     Route: 055
     Dates: start: 2012
  12. PEPCID [Concomitant]
     Active Substance: FAMOTIDINE
     Indication: DYSPEPSIA
     Dates: start: 2014
  13. PREDNISONE. [Concomitant]
     Active Substance: PREDNISONE
     Indication: CHRONIC OBSTRUCTIVE PULMONARY DISEASE
  14. SYMBICORT [Suspect]
     Active Substance: BUDESONIDE\FORMOTEROL FUMARATE DIHYDRATE
     Indication: ASTHMA
     Dosage: 80/4.5, ONE PUFF TWICE DAILY
     Route: 055
     Dates: start: 2013, end: 2013
  15. SYMBICORT [Suspect]
     Active Substance: BUDESONIDE\FORMOTEROL FUMARATE DIHYDRATE
     Indication: CHRONIC OBSTRUCTIVE PULMONARY DISEASE
     Dosage: 80/4.5 UG TWO PUFFS TWO TIMES A DAY
     Route: 055
     Dates: start: 20150810
  16. PSEUDOEPHEDRINE [Concomitant]
     Active Substance: PSEUDOEPHEDRINE
     Indication: NASAL CONGESTION
     Dosage: 1 PILL
     Route: 048
  17. PREDNISONE. [Concomitant]
     Active Substance: PREDNISONE
     Indication: EMPHYSEMA
  18. SPIRIVA [Concomitant]
     Active Substance: TIOTROPIUM BROMIDE MONOHYDRATE
     Indication: CHRONIC OBSTRUCTIVE PULMONARY DISEASE
     Dates: start: 201312
  19. SYMBICORT [Suspect]
     Active Substance: BUDESONIDE\FORMOTEROL FUMARATE DIHYDRATE
     Indication: CHRONIC OBSTRUCTIVE PULMONARY DISEASE
     Dosage: 80/4.5, TWO PUFFS TWICE DAILY
     Route: 055
     Dates: start: 20131126, end: 201401
  20. BRONKAID [Concomitant]
     Active Substance: EPHEDRINE SULFATE\GUAIFENESIN
  21. PULMICORT FLEXHALER [Suspect]
     Active Substance: BUDESONIDE
     Indication: ASTHMA
     Route: 055
     Dates: start: 2013, end: 20140118
  22. PULMICORT FLEXHALER [Suspect]
     Active Substance: BUDESONIDE
     Indication: CHRONIC OBSTRUCTIVE PULMONARY DISEASE
     Route: 055
     Dates: start: 2013, end: 20140118
  23. PULMICORT FLEXHALER [Suspect]
     Active Substance: BUDESONIDE
     Indication: CHRONIC OBSTRUCTIVE PULMONARY DISEASE
     Route: 055
     Dates: start: 20140119
  24. FORADIL [Concomitant]
     Active Substance: FORMOTEROL FUMARATE
     Indication: ASTHMA
     Dosage: 1-2 PUFFS BID
     Route: 055
     Dates: start: 20130805, end: 2015
  25. XOPENEX HFA [Concomitant]
     Active Substance: LEVALBUTEROL TARTRATE
     Indication: CHRONIC OBSTRUCTIVE PULMONARY DISEASE
     Dosage: PRESCRIBED UP TO 4 X, DAILY
     Route: 055
     Dates: start: 2012
  26. SYMBICORT [Suspect]
     Active Substance: BUDESONIDE\FORMOTEROL FUMARATE DIHYDRATE
     Indication: EMPHYSEMA
     Dosage: 80/4.5, TWO PUFFS TWICE DAILY
     Route: 055
     Dates: start: 20131126, end: 201401
  27. PULMICORT FLEXHALER [Suspect]
     Active Substance: BUDESONIDE
     Indication: ASTHMA
     Route: 055
     Dates: start: 20140119
  28. TUDORZA PRESSAIR [Suspect]
     Active Substance: ACLIDINIUM BROMIDE
     Indication: EMPHYSEMA
     Route: 055
     Dates: start: 20160104
  29. CITRUCEL [Concomitant]
     Active Substance: METHYLCELLULOSE (4000 MPA.S)
     Indication: PAIN
  30. SYMBICORT [Suspect]
     Active Substance: BUDESONIDE\FORMOTEROL FUMARATE DIHYDRATE
     Indication: CHRONIC OBSTRUCTIVE PULMONARY DISEASE
     Dosage: 80/4.5, ONE PUFF TWICE DAILY
     Route: 055
     Dates: start: 2013, end: 2013

REACTIONS (33)
  - Urinary incontinence [Unknown]
  - Muscle spasms [Unknown]
  - Weight increased [Unknown]
  - Anxiety [Unknown]
  - Body height decreased [Unknown]
  - Nervousness [Unknown]
  - Drug effect decreased [Unknown]
  - Pain in extremity [Unknown]
  - Back pain [Unknown]
  - Off label use [Unknown]
  - Joint swelling [Unknown]
  - Head discomfort [Unknown]
  - Adverse event [Unknown]
  - Dyspepsia [Unknown]
  - Cough [Unknown]
  - Feeling abnormal [Unknown]
  - Bronchospasm [Unknown]
  - Limb discomfort [Unknown]
  - Nasal congestion [Unknown]
  - Muscular weakness [Unknown]
  - Condition aggravated [Recovering/Resolving]
  - Dyspnoea exertional [Recovering/Resolving]
  - Anxiety [Unknown]
  - Intentional product misuse [Unknown]
  - Dyspnoea [Unknown]
  - Chest discomfort [Unknown]
  - Gait disturbance [Unknown]
  - Oxygen saturation decreased [Unknown]
  - Drug ineffective [Unknown]
  - Pain [Unknown]
  - Visual acuity reduced [Unknown]
  - Muscle spasms [Unknown]
  - Rash [Unknown]

NARRATIVE: CASE EVENT DATE: 2013
